FAERS Safety Report 7939107-0 (Version None)
Quarter: 2011Q4

REPORT INFORMATION
  Report Type: 
  Country: None (occurrence: None)
  Receive Date: 20111124
  Receipt Date: 20111114
  Transmission Date: 20120403
  Serious: Yes (Other)
  Sender: FDA-Public Use
  Company Number: JP-ROCHE-1015663

PATIENT
  Age: 82 Year
  Sex: Male

DRUGS (2)
  1. LUCENTIS [Suspect]
     Route: 065
     Dates: start: 20111001
  2. LUCENTIS [Suspect]
     Indication: AGE-RELATED MACULAR DEGENERATION
     Dosage: 5 MONTHLYINTERVAL
     Route: 050
     Dates: start: 20100801, end: 20101201

REACTIONS (1)
  - AGE-RELATED MACULAR DEGENERATION [None]
